FAERS Safety Report 17653179 (Version 1)
Quarter: 2020Q2

REPORT INFORMATION
  Report Type: Spontaneous
  Country: IT (occurrence: IT)
  Receive Date: 20200410
  Receipt Date: 20200410
  Transmission Date: 20200713
  Serious: Yes (Other)
  Sender: FDA-Public Use
  Company Number: IT-SUN PHARMACEUTICAL INDUSTRIES LTD-2020RR-243436

PATIENT
  Age: 48 Year
  Sex: Male

DRUGS (11)
  1. SILDENAFIL. [Suspect]
     Active Substance: SILDENAFIL
     Indication: ERECTILE DYSFUNCTION
     Dosage: 50 MILLIGRAM, UNK
     Route: 065
  2. PROSTAGLANDIN E1 [Suspect]
     Active Substance: ALPROSTADIL
     Indication: PREMATURE EJACULATION
  3. METFORMIN [Concomitant]
     Active Substance: METFORMIN HYDROCHLORIDE
     Indication: TYPE 2 DIABETES MELLITUS
     Dosage: UNK
     Route: 065
     Dates: start: 2006
  4. SILDENAFIL. [Suspect]
     Active Substance: SILDENAFIL
     Indication: PREMATURE EJACULATION
  5. PROSTAGLANDIN E1 [Suspect]
     Active Substance: ALPROSTADIL
     Indication: ERECTILE DYSFUNCTION
     Dosage: 40 MICROGRAM, UNK
     Route: 065
  6. LIDOCAINE/PRILOCAINE [Suspect]
     Active Substance: LIDOCAINE\PRILOCAINE
     Indication: PREMATURE EJACULATION
  7. TADALAFIL. [Suspect]
     Active Substance: TADALAFIL
     Indication: ERECTILE DYSFUNCTION
     Dosage: 20 MILLIGRAM, PRN
     Route: 065
  8. PAROXETINE. [Suspect]
     Active Substance: PAROXETINE
     Indication: ERECTILE DYSFUNCTION
  9. LIDOCAINE/PRILOCAINE [Suspect]
     Active Substance: LIDOCAINE\PRILOCAINE
     Indication: ERECTILE DYSFUNCTION
     Dosage: UNK
     Route: 061
  10. PAROXETINE. [Suspect]
     Active Substance: PAROXETINE
     Indication: PREMATURE EJACULATION
     Dosage: 20 MILLIGRAM, DAILY
     Route: 065
  11. TADALAFIL. [Suspect]
     Active Substance: TADALAFIL
     Indication: PREMATURE EJACULATION

REACTIONS (2)
  - Drug ineffective [Unknown]
  - Adverse event [Unknown]
